FAERS Safety Report 8139011-1 (Version None)
Quarter: 2012Q1

REPORT INFORMATION
  Report Type: 
  Country: None (occurrence: None)
  Receive Date: 20120215
  Receipt Date: 20120201
  Transmission Date: 20120608
  Serious: Yes (Life-Threatening, Hospitalization)
  Sender: FDA-Public Use
  Company Number: NL-ALEXION PHARMACEUTICALS INC.-A201200201

PATIENT
  Sex: Male

DRUGS (8)
  1. CYANOCOBALAMIN [Concomitant]
     Dosage: ONCE Q2MONTHS
     Route: 030
  2. TEMAZEPAM [Concomitant]
     Dosage: PRN
     Route: 048
  3. FOLIC ACID [Concomitant]
     Dosage: 5 MG, QD
     Route: 048
  4. IRBESARTAN [Concomitant]
     Dosage: 300 MG, QD
     Route: 048
  5. METOCLOPRAMIDE [Concomitant]
     Dosage: 50 MG, QD
     Route: 048
  6. NEXIUM [Concomitant]
     Dosage: 40 MG, QD
     Route: 048
  7. SOLIRIS [Suspect]
     Indication: PAROXYSMAL NOCTURNAL HAEMOGLOBINURIA
     Dosage: 600 MG, QW
     Route: 042
     Dates: start: 20090410, end: 20090502
  8. SOLIRIS [Suspect]
     Dosage: 900 MG, Q2W
     Route: 042
     Dates: start: 20090508

REACTIONS (4)
  - POST PROCEDURAL HAEMORRHAGE [None]
  - CHOLECYSTECTOMY [None]
  - CHOLECYSTITIS [None]
  - CHOLELITHIASIS [None]
